FAERS Safety Report 25153110 (Version 1)
Quarter: 2025Q2

REPORT INFORMATION
  Report Type: Spontaneous
  Country: US (occurrence: US)
  Receive Date: 20250403
  Receipt Date: 20250403
  Transmission Date: 20250716
  Serious: Yes (Other)
  Sender: SANDOZ
  Company Number: US-SANDOZ-SDZ2025US019583

PATIENT
  Age: 78 Year
  Sex: Female

DRUGS (5)
  1. AZITHROMYCIN [Suspect]
     Active Substance: AZITHROMYCIN
     Indication: Mycobacterium avium complex infection
     Route: 065
     Dates: start: 202401
  2. APIXABAN [Suspect]
     Active Substance: APIXABAN
     Indication: Pulmonary embolism
     Route: 065
     Dates: start: 2024
  3. APIXABAN [Suspect]
     Active Substance: APIXABAN
     Indication: Deep vein thrombosis
  4. ETHAMBUTOL [Suspect]
     Active Substance: ETHAMBUTOL HYDROCHLORIDE
     Indication: Mycobacterium avium complex infection
     Route: 065
     Dates: start: 202401
  5. NAPROXEN SODIUM [Suspect]
     Active Substance: NAPROXEN SODIUM
     Indication: Mycobacterium avium complex infection
     Route: 065
     Dates: start: 202401

REACTIONS (2)
  - Optic neuritis [Unknown]
  - Drug ineffective [Unknown]

NARRATIVE: CASE EVENT DATE: 20240901
